FAERS Safety Report 6752215-5 (Version None)
Quarter: 2010Q2

REPORT INFORMATION
  Report Type: 
  Country: None (occurrence: None)
  Receive Date: 20100526
  Receipt Date: 20100408
  Transmission Date: 20101027
  Serious: No
  Sender: FDA-Public Use
  Company Number: 307292

PATIENT
  Sex: Female

DRUGS (1)
  1. VICTOZA [Suspect]
     Indication: INSULIN-REQUIRING TYPE 2 DIABETES MELLITUS
     Dosage: 1.8 MG, QD, SUBCUTANEOUS ; 1.2, SUBCUTANEOUS
     Route: 058

REACTIONS (3)
  - EAR DISCOMFORT [None]
  - THROAT IRRITATION [None]
  - WEIGHT DECREASED [None]
